FAERS Safety Report 7955218-8 (Version None)
Quarter: 2011Q4

REPORT INFORMATION
  Report Type: 
  Country: None (occurrence: None)
  Receive Date: 20111129
  Receipt Date: 20111115
  Transmission Date: 20120403
  Serious: Yes (Other)
  Sender: FDA-Public Use
  Company Number: 1114804

PATIENT
  Age: 44 Year
  Sex: Male

DRUGS (7)
  1. IFOSFAMIDE [Suspect]
     Indication: RHABDOMYOSARCOMA
  2. ETOPOSIDE [Suspect]
     Indication: RHABDOMYOSARCOMA
  3. EPIRUBICIN HYDROCHLORIDE [Suspect]
     Indication: RHABDOMYOSARCOMA
  4. CARBOPLATIN [Suspect]
     Indication: RHABDOMYOSARCOMA
  5. VINCRISTINE [Suspect]
     Indication: RHABDOMYOSARCOMA
  6. DACTINOMYCIN [Suspect]
     Indication: RHABDOMYOSARCOMA
  7. (THERAPEUTIC RADIOPHARMACEUTICALS) [Suspect]
     Indication: RHABDOMYOSARCOMA

REACTIONS (4)
  - INFECTION [None]
  - TOXICITY TO VARIOUS AGENTS [None]
  - CACHEXIA [None]
  - DISEASE COMPLICATION [None]
